FAERS Safety Report 18503224 (Version 2)
Quarter: 2020Q4

REPORT INFORMATION
  Report Type: Report from Study
  Country: US (occurrence: US)
  Receive Date: 20201113
  Receipt Date: 20201202
  Transmission Date: 20210114
  Serious: Yes (Hospitalization)
  Sender: FDA-Public Use
  Company Number: US-JNJFOC-20201047226

PATIENT
  Age: 25 Year
  Sex: Female
  Weight: 53.12 kg

DRUGS (3)
  1. EPOPROSTENOL SODIUM. [Suspect]
     Active Substance: EPOPROSTENOL SODIUM
     Indication: PULMONARY ARTERIAL HYPERTENSION
     Route: 042
  2. OPSUMIT [Concomitant]
     Active Substance: MACITENTAN
  3. SILDENAFIL CITRATE. [Concomitant]
     Active Substance: SILDENAFIL CITRATE

REACTIONS (8)
  - Dyspnoea exertional [Not Recovered/Not Resolved]
  - Catheter site discharge [Unknown]
  - Peripheral swelling [Unknown]
  - Catheter site pruritus [Unknown]
  - Catheter site swelling [Unknown]
  - Catheter site erythema [Unknown]
  - Rash erythematous [Unknown]
  - Catheter site rash [Unknown]

NARRATIVE: CASE EVENT DATE: 202010
